FAERS Safety Report 23906256 (Version 1)
Quarter: 2024Q2

REPORT INFORMATION
  Report Type: Spontaneous
  Country: US (occurrence: US)
  Receive Date: 20240528
  Receipt Date: 20240528
  Transmission Date: 20240716
  Serious: No
  Sender: FDA-Public Use
  Company Number: US-SA-SAC20240521001116

PATIENT
  Age: 81 Year
  Sex: Female

DRUGS (14)
  1. DUPIXENT [Suspect]
     Active Substance: DUPILUMAB
     Indication: Dermatitis
     Dosage: 200 MG, QOW
     Route: 058
     Dates: start: 20240425
  2. ENBREL [Concomitant]
     Active Substance: BENZYL ALCOHOL\ETANERCEPT
  3. BUPROPION [Concomitant]
     Active Substance: BUPROPION
  4. METHOTREXATE [Concomitant]
     Active Substance: METHOTREXATE
  5. FOLIC ACID [Concomitant]
     Active Substance: FOLIC ACID
  6. VITAMIN D3 [Concomitant]
     Active Substance: CHOLECALCIFEROL
  7. TREMFYA [Concomitant]
     Active Substance: GUSELKUMAB
  8. STELARA [Concomitant]
     Active Substance: USTEKINUMAB
  9. IVERMECTIN [Concomitant]
     Active Substance: IVERMECTIN
  10. METRONIDAZOLE [Concomitant]
     Active Substance: METRONIDAZOLE
  11. AZELAIC ACID [Concomitant]
     Active Substance: AZELAIC ACID
  12. NIACINAMIDE [Concomitant]
     Active Substance: NIACINAMIDE
  13. PROSACEA [Concomitant]
     Active Substance: SULFUR
  14. COSENTYX [Concomitant]
     Active Substance: SECUKINUMAB

REACTIONS (2)
  - Rosacea [Unknown]
  - Product use in unapproved indication [Unknown]

NARRATIVE: CASE EVENT DATE: 20240425
